FAERS Safety Report 9562779 (Version 1)
Quarter: 2013Q3

REPORT INFORMATION
  Report Type: Spontaneous
  Country: GB (occurrence: GB)
  Receive Date: 20130927
  Receipt Date: 20130927
  Transmission Date: 20140515
  Serious: Yes (Other)
  Sender: FDA-Public Use
  Company Number: GB-BAXTER-2013BAX037119

PATIENT
  Sex: 0

DRUGS (5)
  1. CYCLOPHOSPHAMIDE INJECTION 1G [Suspect]
     Indication: UVEITIS
     Route: 042
  2. CYCLOPHOSPHAMIDE INJECTION 1G [Suspect]
     Indication: OFF LABEL USE
  3. METHYLPREDNISOLONE [Suspect]
     Indication: UVEITIS
     Route: 042
  4. PREDNISOLONE [Suspect]
     Indication: UVEITIS
     Dosage: 40-60 MG; PULSES 1 AND 2
     Route: 048
  5. PREDNISOLONE [Suspect]
     Dosage: 40-30 MG;PULSES 2 AND 3
     Route: 048

REACTIONS (1)
  - Drug intolerance [Unknown]
